FAERS Safety Report 5321659-0 (Version None)
Quarter: 2007Q1

REPORT INFORMATION
  Report Type: 
  Country: None (occurrence: None)
  Receive Date: 20070220
  Receipt Date: 20061211
  Transmission Date: 20070707
  Serious: No
  Sender: FDA-Public Use
  Company Number: TPA2006A02230

PATIENT
  Age: 32 Year
  Sex: Male
  Weight: 61.2356 kg

DRUGS (3)
  1. ROZEREM [Suspect]
     Dosage: 8 MG, HS, PER ORAL
     Route: 048
     Dates: start: 20061209
  2. OXYCONTIN [Concomitant]
  3. LORTAB [Concomitant]

REACTIONS (2)
  - HICCUPS [None]
  - INITIAL INSOMNIA [None]
